FAERS Safety Report 25500699 (Version 2)
Quarter: 2025Q3

REPORT INFORMATION
  Report Type: Spontaneous
  Country: JP (occurrence: JP)
  Receive Date: 20250701
  Receipt Date: 20250814
  Transmission Date: 20251021
  Serious: Yes (Other)
  Sender: BAYER HEALTHCARE PHARMACEUTICALS INC.
  Company Number: JP-BAYER-2025A086664

PATIENT
  Age: 69 Year
  Sex: Male

DRUGS (7)
  1. NUBEQA [Suspect]
     Active Substance: DAROLUTAMIDE
     Indication: Hormone-dependent prostate cancer
     Dates: start: 20250219
  2. DOCETAXEL [Suspect]
     Active Substance: DOCETAXEL
     Dates: start: 20250219, end: 20250219
  3. DOCETAXEL [Suspect]
     Active Substance: DOCETAXEL
     Dates: start: 20250404, end: 20250404
  4. DOCETAXEL [Suspect]
     Active Substance: DOCETAXEL
  5. DOCETAXEL [Suspect]
     Active Substance: DOCETAXEL
  6. DOCETAXEL [Suspect]
     Active Substance: DOCETAXEL
     Dates: start: 20250516, end: 20250516
  7. PREDNISOLONE [Suspect]
     Active Substance: PREDNISOLONE

REACTIONS (4)
  - Neuropathy peripheral [Unknown]
  - Dry skin [Unknown]
  - Hyperglycaemia [Unknown]
  - Hypoaesthesia [Unknown]

NARRATIVE: CASE EVENT DATE: 20250404
